FAERS Safety Report 6414071-4 (Version None)
Quarter: 2009Q4

REPORT INFORMATION
  Report Type: 
  Country: None (occurrence: None)
  Receive Date: 20091026
  Receipt Date: 20091021
  Transmission Date: 20100525
  Serious: Yes (Hospitalization, Other)
  Sender: FDA-Public Use
  Company Number: US-BAYER-200915797BCC

PATIENT
  Age: 53 Year
  Sex: Female
  Weight: 75 kg

DRUGS (3)
  1. ALEVE [Suspect]
     Indication: DRUG USE FOR UNKNOWN INDICATION
     Route: 048
     Dates: start: 20060101, end: 20060101
  2. PREVACID [Concomitant]
     Route: 065
  3. ZYRTEC [Concomitant]
     Route: 065

REACTIONS (3)
  - LOSS OF CONSCIOUSNESS [None]
  - THROAT TIGHTNESS [None]
  - URTICARIA [None]
